FAERS Safety Report 18122703 (Version 1)
Quarter: 2020Q3

REPORT INFORMATION
  Report Type: Spontaneous
  Country: US (occurrence: US)
  Receive Date: 20200806
  Receipt Date: 20200806
  Transmission Date: 20201103
  Serious: Yes (Death)
  Sender: FDA-Public Use
  Company Number: None

PATIENT
  Age: 80 Year
  Weight: 72.54 kg

DRUGS (13)
  1. ABIRATERONE. [Suspect]
     Active Substance: ABIRATERONE ACETATE
     Indication: PROSTATE CANCER
     Route: 048
     Dates: start: 20200413
  2. LUPRON [Concomitant]
     Active Substance: LEUPROLIDE ACETATE
  3. FOLIC ACID. [Concomitant]
     Active Substance: FOLIC ACID
  4. GLIPIZIDE. [Concomitant]
     Active Substance: GLIPIZIDE
  5. PROCHLORPERAZINE. [Concomitant]
     Active Substance: PROCHLORPERAZINE
  6. TAMSULOSIN [Concomitant]
     Active Substance: TAMSULOSIN
  7. NORCO [Concomitant]
     Active Substance: ACETAMINOPHEN\HYDROCODONE BITARTRATE
  8. BASAGLAR [Concomitant]
     Active Substance: INSULIN GLARGINE
  9. AMLODIPINE [Concomitant]
     Active Substance: AMLODIPINE BESYLATE
  10. BISMATROL [Concomitant]
     Active Substance: BISMUTH SUBSALICYLATE
  11. OMEPRAZOLE. [Concomitant]
     Active Substance: OMEPRAZOLE
  12. PREDNISONE. [Concomitant]
     Active Substance: PREDNISONE
  13. XGEVA [Concomitant]
     Active Substance: DENOSUMAB

REACTIONS (1)
  - Death [None]

NARRATIVE: CASE EVENT DATE: 20200805
